FAERS Safety Report 19249580 (Version 1)
Quarter: 2021Q2

REPORT INFORMATION
  Report Type: Spontaneous
  Country: US (occurrence: US)
  Receive Date: 20210512
  Receipt Date: 20210512
  Transmission Date: 20210717
  Serious: Yes (Life-Threatening, Hospitalization, Other)
  Sender: FDA-Public Use
  Company Number: US-UNITED THERAPEUTICS-UNT-2021-008503

PATIENT
  Age: 40 Year
  Sex: Female

DRUGS (1)
  1. REMODULIN [Suspect]
     Active Substance: TREPROSTINIL
     Indication: PULMONARY HYPERTENSION
     Dosage: UNK, CONTINUING
     Route: 041

REACTIONS (7)
  - Pyrexia [Unknown]
  - Septic embolus [Unknown]
  - Respiratory distress [Unknown]
  - Staphylococcal bacteraemia [Unknown]
  - Cardiac valve vegetation [Unknown]
  - Hypotension [Unknown]
  - Pneumonia [Unknown]
